FAERS Safety Report 9699230 (Version 2)
Quarter: 2013Q4

REPORT INFORMATION
  Report Type: Spontaneous
  Country: US (occurrence: US)
  Receive Date: 20131120
  Receipt Date: 20131120
  Transmission Date: 20140711
  Serious: No
  Sender: FDA-Public Use
  Company Number: US-GILEAD-2008-0014792

PATIENT
  Sex: Female
  Weight: 51.71 kg

DRUGS (7)
  1. LETAIRIS [Suspect]
     Indication: PULMONARY ARTERIAL HYPERTENSION
     Route: 048
  2. ASPIRIN [Concomitant]
     Route: 048
  3. LEVOTHYROXINE [Concomitant]
     Route: 048
  4. NEXIUM [Concomitant]
     Route: 048
  5. CELLCEPT [Concomitant]
     Route: 048
  6. DHEA [Concomitant]
     Route: 048
  7. PROGESTERONE [Concomitant]
     Route: 048

REACTIONS (1)
  - Clostridium difficile colitis [None]
